FAERS Safety Report 17575853 (Version 1)
Quarter: 2020Q1

REPORT INFORMATION
  Report Type: Spontaneous
  Country: US (occurrence: US)
  Receive Date: 20200318
  Receipt Date: 20200318
  Transmission Date: 20200409
  Serious: No
  Sender: FDA-Public Use
  Company Number: None

PATIENT
  Age: 64 Year
  Sex: Female

DRUGS (1)
  1. FORTEO [Suspect]
     Active Substance: TERIPARATIDE
     Indication: OSTEOPOROSIS
     Dosage: ?          OTHER FREQUENCY:EVERY 3 DAY INJECT;?
     Route: 058
     Dates: start: 202002

REACTIONS (2)
  - Arthralgia [None]
  - Muscle spasms [None]

NARRATIVE: CASE EVENT DATE: 202002
